FAERS Safety Report 7308673-0 (Version None)
Quarter: 2011Q1

REPORT INFORMATION
  Report Type: 
  Country: None (occurrence: None)
  Receive Date: 20110211
  Receipt Date: 20110128
  Transmission Date: 20110831
  Serious: Yes (Other)
  Sender: FDA-Public Use
  Company Number: 2011MA000964

PATIENT
  Age: 51 Year

DRUGS (8)
  1. ALLOPURINOL [Concomitant]
  2. VALSARTAN [Concomitant]
  3. DOXAZOSIN MESYLATE TABLETS, 4 MG (BASE) (PUREPAC) (DOXAZOSIN MESILATE) [Suspect]
     Dosage: 4 MG;QD
  4. MIRTAZAPINE [Suspect]
     Indication: DEPRESSION
  5. PREV MEDS [Concomitant]
  6. METFORMIN HYDROCHLORIDE [Suspect]
     Dosage: 1500 MG;QD
  7. COLCHICINE [Concomitant]
  8. CETIRIZINE HCL [Concomitant]

REACTIONS (1)
  - PANCREATITIS ACUTE [None]
